FAERS Safety Report 6138818-X (Version None)
Quarter: 2009Q1

REPORT INFORMATION
  Report Type: 
  Country: None (occurrence: None)
  Receive Date: 20090327
  Receipt Date: 20090319
  Transmission Date: 20090719
  Serious: Yes (Hospitalization)
  Sender: FDA-Public Use
  Company Number: SPV1-2009-00463

PATIENT
  Age: 89 Year
  Sex: Male

DRUGS (5)
  1. XAGRID (ANAGRELIDE HYDROCHLORIDE) CAPSULE [Suspect]
     Indication: THROMBOCYTHAEMIA
     Dosage: 2 MG DAILY, ORAL
     Route: 048
     Dates: start: 20090201, end: 20090201
  2. PLAVIX /01220702/ (CLOPIDOGREL SULFATE) [Concomitant]
  3. LASIX [Concomitant]
  4. BLOCADREN [Concomitant]
  5. SALOSPIR /00002701/ (ACETYLSALICYLIC ACID) [Concomitant]

REACTIONS (5)
  - AGITATION [None]
  - FATIGUE [None]
  - HAEMATOCRIT DECREASED [None]
  - RESPIRATORY TRACT INFECTION [None]
  - WHITE BLOOD CELL COUNT DECREASED [None]
